FAERS Safety Report 5048787-1 (Version None)
Quarter: 2006Q3

REPORT INFORMATION
  Report Type: 
  Country: None (occurrence: None)
  Receive Date: 20060706
  Receipt Date: 20060626
  Transmission Date: 20061208
  Serious: Yes (Life-Threatening, Hospitalization)
  Sender: FDA-Public Use
  Company Number: 200612691GDS

PATIENT
  Age: 26 Year
  Sex: Male

DRUGS (2)
  1. ASPIRIN [Suspect]
     Indication: INFLUENZA
     Dosage: 500 MG, QD, ORAL;  500 MG, BID, ORAL
     Route: 048
     Dates: start: 20060606
  2. ASPIRIN [Suspect]
     Indication: INFLUENZA
     Dosage: 500 MG, QD, ORAL;  500 MG, BID, ORAL
     Route: 048
     Dates: start: 20060607

REACTIONS (1)
  - GASTRIC ULCER PERFORATION [None]
